FAERS Safety Report 6190547-2 (Version None)
Quarter: 2009Q2

REPORT INFORMATION
  Report Type: 
  Country: None (occurrence: None)
  Receive Date: 20090514
  Receipt Date: 20090504
  Transmission Date: 20091009
  Serious: Yes (Other)
  Sender: FDA-Public Use
  Company Number: US-PFIZER INC-2009208606

PATIENT
  Sex: Male
  Weight: 79 kg

DRUGS (2)
  1. LIPITOR [Suspect]
     Indication: BLOOD CHOLESTEROL INCREASED
     Dosage: 20 MG, 1X/DAY
     Route: 048
     Dates: start: 19990101
  2. ASPIRIN [Concomitant]
     Dosage: UNK

REACTIONS (10)
  - ABDOMINAL PAIN UPPER [None]
  - FAECES DISCOLOURED [None]
  - FALL [None]
  - FOOT FRACTURE [None]
  - GAIT DISTURBANCE [None]
  - HIP FRACTURE [None]
  - LIVER DISORDER [None]
  - MULTIPLE FRACTURES [None]
  - RENAL ATROPHY [None]
  - RENAL IMPAIRMENT [None]
